FAERS Safety Report 25564628 (Version 1)
Quarter: 2025Q3

REPORT INFORMATION
  Report Type: Spontaneous
  Country: IN (occurrence: IN)
  Receive Date: 20250716
  Receipt Date: 20250716
  Transmission Date: 20251020
  Serious: Yes (Hospitalization)
  Sender: MYLAN
  Company Number: IN-MYLANLABS-2025M1059150

PATIENT
  Age: 96 Year
  Sex: Male

DRUGS (88)
  1. PREGABALIN [Interacting]
     Active Substance: PREGABALIN
     Indication: Pain in extremity
  2. PREGABALIN [Interacting]
     Active Substance: PREGABALIN
     Route: 048
  3. PREGABALIN [Interacting]
     Active Substance: PREGABALIN
     Route: 048
  4. PREGABALIN [Interacting]
     Active Substance: PREGABALIN
  5. TRIHEXYPHENIDYL [Suspect]
     Active Substance: TRIHEXYPHENIDYL
     Indication: Neuropsychological symptoms
     Dosage: 2 MILLIGRAM, QD
  6. TRIHEXYPHENIDYL [Suspect]
     Active Substance: TRIHEXYPHENIDYL
     Dosage: 2 MILLIGRAM, QD
     Route: 065
  7. TRIHEXYPHENIDYL [Suspect]
     Active Substance: TRIHEXYPHENIDYL
     Dosage: 2 MILLIGRAM, QD
     Route: 065
  8. TRIHEXYPHENIDYL [Suspect]
     Active Substance: TRIHEXYPHENIDYL
     Dosage: 2 MILLIGRAM, QD
  9. DULOXETINE [Interacting]
     Active Substance: DULOXETINE
     Indication: Feeling cold
     Dosage: 20 MILLIGRAM, QD
  10. DULOXETINE [Interacting]
     Active Substance: DULOXETINE
     Dosage: 20 MILLIGRAM, QD
     Route: 065
  11. DULOXETINE [Interacting]
     Active Substance: DULOXETINE
     Dosage: 20 MILLIGRAM, QD
     Route: 065
  12. DULOXETINE [Interacting]
     Active Substance: DULOXETINE
     Dosage: 20 MILLIGRAM, QD
  13. RASAGILINE [Suspect]
     Active Substance: RASAGILINE
     Indication: Neuropsychological symptoms
     Dosage: 1 MILLIGRAM, QD
  14. RASAGILINE [Suspect]
     Active Substance: RASAGILINE
     Dosage: 1 MILLIGRAM, QD
     Route: 065
  15. RASAGILINE [Suspect]
     Active Substance: RASAGILINE
     Dosage: 1 MILLIGRAM, QD
     Route: 065
  16. RASAGILINE [Suspect]
     Active Substance: RASAGILINE
     Dosage: 1 MILLIGRAM, QD
  17. RISPERIDONE [Suspect]
     Active Substance: RISPERIDONE
     Indication: Neuropsychological symptoms
     Route: 065
  18. RISPERIDONE [Suspect]
     Active Substance: RISPERIDONE
  19. RISPERIDONE [Suspect]
     Active Substance: RISPERIDONE
  20. RISPERIDONE [Suspect]
     Active Substance: RISPERIDONE
     Route: 065
  21. RISPERIDONE [Suspect]
     Active Substance: RISPERIDONE
     Route: 065
  22. RISPERIDONE [Suspect]
     Active Substance: RISPERIDONE
  23. RISPERIDONE [Suspect]
     Active Substance: RISPERIDONE
  24. RISPERIDONE [Suspect]
     Active Substance: RISPERIDONE
     Route: 065
  25. AMANTADINE [Suspect]
     Active Substance: AMANTADINE
     Indication: Neuropsychological symptoms
     Dosage: 129 MILLIGRAM, QD
  26. AMANTADINE [Suspect]
     Active Substance: AMANTADINE
     Dosage: 129 MILLIGRAM, QD
     Route: 065
  27. AMANTADINE [Suspect]
     Active Substance: AMANTADINE
     Dosage: 129 MILLIGRAM, QD
     Route: 065
  28. AMANTADINE [Suspect]
     Active Substance: AMANTADINE
     Dosage: 129 MILLIGRAM, QD
  29. ARMODAFINIL [Suspect]
     Active Substance: ARMODAFINIL
     Indication: Neuropsychological symptoms
  30. ARMODAFINIL [Suspect]
     Active Substance: ARMODAFINIL
     Route: 065
  31. ARMODAFINIL [Suspect]
     Active Substance: ARMODAFINIL
     Route: 065
  32. ARMODAFINIL [Suspect]
     Active Substance: ARMODAFINIL
  33. MEMANTINE [Suspect]
     Active Substance: MEMANTINE
     Indication: Neuropsychological symptoms
     Dosage: 10 MILLIGRAM, QD
  34. MEMANTINE [Suspect]
     Active Substance: MEMANTINE
     Dosage: 10 MILLIGRAM, QD
     Route: 065
  35. MEMANTINE [Suspect]
     Active Substance: MEMANTINE
     Dosage: 10 MILLIGRAM, QD
     Route: 065
  36. MEMANTINE [Suspect]
     Active Substance: MEMANTINE
     Dosage: 10 MILLIGRAM, QD
  37. QUETIAPINE [Concomitant]
     Active Substance: QUETIAPINE
     Indication: Neuropsychological symptoms
     Dosage: 50 MILLIGRAM, QD
  38. QUETIAPINE [Concomitant]
     Active Substance: QUETIAPINE
     Dosage: 50 MILLIGRAM, QD
  39. QUETIAPINE [Concomitant]
     Active Substance: QUETIAPINE
     Dosage: 50 MILLIGRAM, QD
     Route: 065
  40. QUETIAPINE [Concomitant]
     Active Substance: QUETIAPINE
     Dosage: 50 MILLIGRAM, QD
     Route: 065
  41. QUETIAPINE [Concomitant]
     Active Substance: QUETIAPINE
     Dosage: 100 MILLIGRAM, QD
  42. QUETIAPINE [Concomitant]
     Active Substance: QUETIAPINE
     Dosage: 100 MILLIGRAM, QD
  43. QUETIAPINE [Concomitant]
     Active Substance: QUETIAPINE
     Dosage: 100 MILLIGRAM, QD
     Route: 065
  44. QUETIAPINE [Concomitant]
     Active Substance: QUETIAPINE
     Dosage: 100 MILLIGRAM, QD
     Route: 065
  45. REBAMIPIDE [Concomitant]
     Active Substance: REBAMIPIDE
     Indication: Neuropsychological symptoms
  46. REBAMIPIDE [Concomitant]
     Active Substance: REBAMIPIDE
     Route: 065
  47. REBAMIPIDE [Concomitant]
     Active Substance: REBAMIPIDE
     Route: 065
  48. REBAMIPIDE [Concomitant]
     Active Substance: REBAMIPIDE
  49. DONEPEZIL [Concomitant]
     Active Substance: DONEPEZIL
     Indication: Neuropsychological symptoms
     Dosage: 10 MILLIGRAM, QD
  50. DONEPEZIL [Concomitant]
     Active Substance: DONEPEZIL
     Dosage: 10 MILLIGRAM, QD
     Route: 065
  51. DONEPEZIL [Concomitant]
     Active Substance: DONEPEZIL
     Dosage: 10 MILLIGRAM, QD
     Route: 065
  52. DONEPEZIL [Concomitant]
     Active Substance: DONEPEZIL
     Dosage: 10 MILLIGRAM, QD
  53. MELATONIN [Concomitant]
     Active Substance: MELATONIN
     Indication: Insomnia
     Dosage: 5 MILLIGRAM, QD
  54. MELATONIN [Concomitant]
     Active Substance: MELATONIN
     Dosage: 5 MILLIGRAM, QD
     Route: 065
  55. MELATONIN [Concomitant]
     Active Substance: MELATONIN
     Dosage: 5 MILLIGRAM, QD
     Route: 065
  56. MELATONIN [Concomitant]
     Active Substance: MELATONIN
     Dosage: 5 MILLIGRAM, QD
  57. PIPERACILLIN AND TAZOBACTAM [Concomitant]
     Active Substance: PIPERACILLIN SODIUM\TAZOBACTAM SODIUM
     Indication: Mouth ulceration
  58. PIPERACILLIN AND TAZOBACTAM [Concomitant]
     Active Substance: PIPERACILLIN SODIUM\TAZOBACTAM SODIUM
     Route: 065
  59. PIPERACILLIN AND TAZOBACTAM [Concomitant]
     Active Substance: PIPERACILLIN SODIUM\TAZOBACTAM SODIUM
     Route: 065
  60. PIPERACILLIN AND TAZOBACTAM [Concomitant]
     Active Substance: PIPERACILLIN SODIUM\TAZOBACTAM SODIUM
  61. CEFTAZIDIME [Concomitant]
     Active Substance: CEFTAZIDIME
     Indication: Mouth ulceration
  62. CEFTAZIDIME [Concomitant]
     Active Substance: CEFTAZIDIME
     Route: 065
  63. CEFTAZIDIME [Concomitant]
     Active Substance: CEFTAZIDIME
     Route: 065
  64. CEFTAZIDIME [Concomitant]
     Active Substance: CEFTAZIDIME
  65. LINEZOLID [Concomitant]
     Active Substance: LINEZOLID
     Indication: Mouth ulceration
  66. LINEZOLID [Concomitant]
     Active Substance: LINEZOLID
     Route: 065
  67. LINEZOLID [Concomitant]
     Active Substance: LINEZOLID
     Route: 065
  68. LINEZOLID [Concomitant]
     Active Substance: LINEZOLID
  69. ACETAMINOPHEN [Concomitant]
     Active Substance: ACETAMINOPHEN
     Indication: Pyrexia
  70. ACETAMINOPHEN [Concomitant]
     Active Substance: ACETAMINOPHEN
     Route: 065
  71. ACETAMINOPHEN [Concomitant]
     Active Substance: ACETAMINOPHEN
     Route: 065
  72. ACETAMINOPHEN [Concomitant]
     Active Substance: ACETAMINOPHEN
  73. GLYCERIN [Concomitant]
     Active Substance: GLYCERIN
     Indication: Aphthous ulcer
  74. GLYCERIN [Concomitant]
     Active Substance: GLYCERIN
     Route: 061
  75. GLYCERIN [Concomitant]
     Active Substance: GLYCERIN
     Route: 061
  76. GLYCERIN [Concomitant]
     Active Substance: GLYCERIN
  77. ACYCLOVIR [Concomitant]
     Active Substance: ACYCLOVIR
     Indication: Aphthous ulcer
  78. ACYCLOVIR [Concomitant]
     Active Substance: ACYCLOVIR
     Route: 065
  79. ACYCLOVIR [Concomitant]
     Active Substance: ACYCLOVIR
     Route: 065
  80. ACYCLOVIR [Concomitant]
     Active Substance: ACYCLOVIR
  81. FLUCONAZOLE [Concomitant]
     Active Substance: FLUCONAZOLE
     Indication: Aphthous ulcer
  82. FLUCONAZOLE [Concomitant]
     Active Substance: FLUCONAZOLE
     Route: 065
  83. FLUCONAZOLE [Concomitant]
     Active Substance: FLUCONAZOLE
     Route: 065
  84. FLUCONAZOLE [Concomitant]
     Active Substance: FLUCONAZOLE
  85. RIVASTIGMINE [Concomitant]
     Active Substance: RIVASTIGMINE
     Indication: Neuropsychological symptoms
  86. RIVASTIGMINE [Concomitant]
     Active Substance: RIVASTIGMINE
     Route: 065
  87. RIVASTIGMINE [Concomitant]
     Active Substance: RIVASTIGMINE
     Route: 065
  88. RIVASTIGMINE [Concomitant]
     Active Substance: RIVASTIGMINE

REACTIONS (3)
  - Neuropsychological symptoms [Recovered/Resolved]
  - Drug interaction [Recovered/Resolved]
  - Condition aggravated [Recovered/Resolved]
